FAERS Safety Report 5835571-1 (Version None)
Quarter: 2008Q3

REPORT INFORMATION
  Report Type: 
  Country: None (occurrence: None)
  Receive Date: 20080806
  Receipt Date: 20080804
  Transmission Date: 20090109
  Serious: Yes (Death)
  Sender: FDA-Public Use
  Company Number: B0531740A

PATIENT
  Age: 53 Year
  Sex: Male

DRUGS (8)
  1. PAXIL [Suspect]
     Indication: DRUG USE FOR UNKNOWN INDICATION
     Dosage: 20MG PER DAY
     Route: 048
  2. ETISEDAN [Suspect]
     Indication: DRUG USE FOR UNKNOWN INDICATION
     Route: 048
  3. LOXONIN [Suspect]
     Indication: DRUG USE FOR UNKNOWN INDICATION
     Route: 048
  4. MUCOSTA [Suspect]
     Indication: DRUG USE FOR UNKNOWN INDICATION
     Route: 048
  5. JUVELA [Suspect]
     Indication: DRUG USE FOR UNKNOWN INDICATION
     Route: 048
  6. BLOPRESS [Suspect]
     Indication: DRUG USE FOR UNKNOWN INDICATION
     Route: 048
  7. NORVASC [Suspect]
     Indication: DRUG USE FOR UNKNOWN INDICATION
     Route: 048
  8. MYSLEE [Suspect]
     Indication: DRUG USE FOR UNKNOWN INDICATION
     Route: 048

REACTIONS (1)
  - COMPLETED SUICIDE [None]
